FAERS Safety Report 7804511-8 (Version None)
Quarter: 2011Q4

REPORT INFORMATION
  Report Type: 
  Country: None (occurrence: None)
  Receive Date: 20111010
  Receipt Date: 20110928
  Transmission Date: 20120403
  Serious: Yes (Hospitalization, Other)
  Sender: FDA-Public Use
  Company Number: PHHY2011FR86653

PATIENT
  Sex: Female

DRUGS (3)
  1. TIAPRIDAL [Concomitant]
     Dates: start: 20110830
  2. IMOVANE [Concomitant]
  3. CLOZAPINE [Suspect]
     Dates: start: 20110830, end: 20110831

REACTIONS (5)
  - BLOOD GLUCOSE INCREASED [None]
  - MALAISE [None]
  - BLOOD PRESSURE DECREASED [None]
  - ALTERED STATE OF CONSCIOUSNESS [None]
  - DISTURBANCE IN ATTENTION [None]
